FAERS Safety Report 10072311 (Version 1)
Quarter: 2014Q2

REPORT INFORMATION
  Report Type: Spontaneous
  Country: US (occurrence: None)
  Receive Date: 20140409
  Receipt Date: 20140409
  Transmission Date: 20141212
  Serious: Yes (Life-Threatening, Other)
  Sender: FDA-Public Use
  Company Number: 2269752

PATIENT
  Age: 87 Year
  Sex: Female
  Weight: 74.8 kg

DRUGS (3)
  1. DEXTROSE 5% [Suspect]
     Indication: MEDICATION DILUTION
     Route: 048
     Dates: start: 20140321, end: 20140321
  2. VANCOMYCIN HCI [Suspect]
     Indication: EVIDENCE BASED TREATMENT
     Route: 042
     Dates: start: 20140321, end: 20140321
  3. ISOVUE [Suspect]
     Indication: DRUG THERAPY
     Route: 042
     Dates: start: 20140321, end: 20140321

REACTIONS (4)
  - Red man syndrome [None]
  - Dyspnoea [None]
  - Product quality issue [None]
  - Hypersensitivity [None]
